FAERS Safety Report 9308726 (Version 3)
Quarter: 2013Q2

REPORT INFORMATION
  Report Type: Spontaneous
  Country: BB (occurrence: BB)
  Receive Date: 20130524
  Receipt Date: 20130607
  Transmission Date: 20140414
  Serious: Yes (Hospitalization)
  Sender: FDA-Public Use
  Company Number: PHHY2013BB051007

PATIENT
  Age: 38 Year
  Sex: Female

DRUGS (1)
  1. SERVIFLOX [Suspect]
     Indication: INFECTION PROPHYLAXIS
     Dosage: 500 MG, BID

REACTIONS (14)
  - Prothrombin time prolonged [Unknown]
  - Jaundice [Unknown]
  - Weight decreased [Not Recovered/Not Resolved]
  - Muscle atrophy [Not Recovered/Not Resolved]
  - Liver function test abnormal [Recovered/Resolved]
  - Body temperature increased [Unknown]
  - Feeling abnormal [Unknown]
  - Nausea [Unknown]
  - Dyspepsia [Unknown]
  - Confusional state [Unknown]
  - Amnesia [Unknown]
  - Vomiting [Unknown]
  - Eczema [Unknown]
  - Arthralgia [Unknown]
